FAERS Safety Report 10845690 (Version 1)
Quarter: 2015Q1

REPORT INFORMATION
  Report Type: Report from Study
  Country: US (occurrence: US)
  Receive Date: 20150220
  Receipt Date: 20150220
  Transmission Date: 20150721
  Serious: Yes (Hospitalization)
  Sender: FDA-Public Use
  Company Number: US-ABBVIE-15K-163-1347583-00

PATIENT
  Age: 74 Year
  Sex: Male
  Weight: 73.55 kg

DRUGS (2)
  1. HUMIRA [Suspect]
     Active Substance: ADALIMUMAB
     Indication: CROHN^S DISEASE
     Route: 058
     Dates: start: 2012, end: 20141023
  2. MESALAMINE. [Concomitant]
     Active Substance: MESALAMINE
     Indication: CROHN^S DISEASE

REACTIONS (11)
  - Post procedural persistent drain fluid [Recovered/Resolved]
  - Crohn^s disease [Unknown]
  - Drug ineffective [Not Recovered/Not Resolved]
  - Faecal incontinence [Recovered/Resolved]
  - Rectal fissure [Recovered/Resolved]
  - Asthenia [Recovered/Resolved]
  - Abdominal abscess [Recovered/Resolved]
  - Muscle abscess [Recovered/Resolved]
  - Fistula discharge [Recovered/Resolved]
  - Anal fistula [Unknown]
  - Anal fistula [Recovered/Resolved]

NARRATIVE: CASE EVENT DATE: 2012
